FAERS Safety Report 8559145-7 (Version None)
Quarter: 2012Q3

REPORT INFORMATION
  Report Type: 
  Country: None (occurrence: None)
  Receive Date: 20120802
  Receipt Date: 20120723
  Transmission Date: 20120928
  Serious: Yes (Other)
  Sender: FDA-Public Use
  Company Number: US-009507513-1207USA011406

PATIENT

DRUGS (4)
  1. RAMIPRIL [Concomitant]
  2. ASPIRIN [Concomitant]
  3. ZOCOR [Suspect]
     Dosage: 40 MG, QD
     Route: 048
  4. BISOPROLOL FUMARATE [Concomitant]

REACTIONS (13)
  - LOW DENSITY LIPOPROTEIN INCREASED [None]
  - ATRIAL FLUTTER [None]
  - SUBCLAVIAN ARTERY OCCLUSION [None]
  - PALPITATIONS [None]
  - CORONARY ARTERY OCCLUSION [None]
  - DISEASE RECURRENCE [None]
  - CORONARY ARTERY STENOSIS [None]
  - DRUG INEFFECTIVE [None]
  - VASCULAR GRAFT COMPLICATION [None]
  - VASCULAR GRAFT OCCLUSION [None]
  - ANGINA UNSTABLE [None]
  - ELECTROCARDIOGRAM ST-T SEGMENT DEPRESSION [None]
  - BLOOD PRESSURE DIFFERENCE OF EXTREMITIES [None]
